FAERS Safety Report 4594972-2 (Version None)
Quarter: 2005Q1

REPORT INFORMATION
  Report Type: 
  Country: None (occurrence: None)
  Receive Date: 20050223
  Receipt Date: 20050210
  Transmission Date: 20050727
  Serious: Yes (Life-Threatening, Hospitalization, Other)
  Sender: FDA-Public Use
  Company Number: 2004119440

PATIENT
  Sex: Female
  Weight: 55 kg

DRUGS (5)
  1. ZOLOFT [Suspect]
     Indication: DEPRESSION
     Dosage: 100 MG (1 IN 1 D), ORAL
     Route: 048
     Dates: start: 20000101, end: 20041224
  2. HYDROCHLOROTHIAZIDE [Suspect]
     Indication: HYPERTENSIVE HEART DISEASE
     Dosage: 12.5 MG (1 IN 1 D), ORAL
     Route: 048
     Dates: start: 20040201, end: 20041201
  3. ASPIRIN [Concomitant]
  4. AMLODIPINE BESYLATE [Concomitant]
  5. ATENOLOL [Concomitant]

REACTIONS (15)
  - ALKALOSIS [None]
  - APALLIC SYNDROME [None]
  - BLOOD OSMOLARITY DECREASED [None]
  - CARDIOVASCULAR DISORDER [None]
  - CEREBROVASCULAR ACCIDENT [None]
  - CEREBROVASCULAR INSUFFICIENCY [None]
  - ELECTROLYTE IMBALANCE [None]
  - EYE DISORDER [None]
  - HYPERTENSIVE CRISIS [None]
  - HYPOKALAEMIA [None]
  - HYPONATRAEMIA [None]
  - LOCKED-IN SYNDROME [None]
  - QUADRIPARESIS [None]
  - RESPIRATORY FAILURE [None]
  - STUPOR [None]
